FAERS Safety Report 9057672 (Version 1)
Quarter: 2013Q1

REPORT INFORMATION
  Report Type: Spontaneous
  Country: US (occurrence: None)
  Receive Date: 20130204
  Receipt Date: 20130204
  Transmission Date: 20140127
  Serious: Yes (Hospitalization)
  Sender: FDA-Public Use
  Company Number: None

PATIENT
  Age: 56 Year
  Sex: Male
  Weight: 87.9 kg

DRUGS (2)
  1. IBUPROFEN [Suspect]
     Dosage: 200 MG  QID  PO
     Route: 048
     Dates: start: 20121002, end: 20121003
  2. ASPIRIN [Suspect]
     Dosage: 520 MG  PRN  PO
     Route: 048
     Dates: start: 20121002, end: 20121003

REACTIONS (2)
  - Gastrointestinal haemorrhage [None]
  - Hypovolaemic shock [None]
